FAERS Safety Report 24967454 (Version 1)
Quarter: 2025Q1

REPORT INFORMATION
  Report Type: Spontaneous
  Country: DE (occurrence: DE)
  Receive Date: 20250214
  Receipt Date: 20250214
  Transmission Date: 20250409
  Serious: No
  Sender: ALKEM
  Company Number: DE-ALKEM LABORATORIES LIMITED-DE-ALKEM-2024-12905

PATIENT
  Age: 57 Year
  Sex: Male

DRUGS (4)
  1. FINGOLIMOD [Suspect]
     Active Substance: FINGOLIMOD
     Indication: Relapsing multiple sclerosis
     Dosage: 0.5 MILLIGRAM, QD
     Route: 048
     Dates: start: 20200304, end: 20240501
  2. OFATUMUMAB [Suspect]
     Active Substance: OFATUMUMAB
     Indication: Relapsing multiple sclerosis
     Dosage: 30 MILLIGRAM, ONCE WEEKLY
     Route: 058
     Dates: start: 20230508, end: 20230522
  3. OFATUMUMAB [Suspect]
     Active Substance: OFATUMUMAB
     Route: 058
     Dates: start: 20230508, end: 20230619
  4. METHYLPREDNISOLONE [Concomitant]
     Active Substance: METHYLPREDNISOLONE
     Indication: Product used for unknown indication
     Dosage: 1000 MILLIGRAM, QD
     Route: 065
     Dates: start: 20221212, end: 20221214

REACTIONS (4)
  - Blood immunoglobulin M decreased [Recovering/Resolving]
  - CD8 lymphocytes decreased [Recovering/Resolving]
  - Lymphopenia [Recovered/Resolved]
  - CD4 lymphocytes decreased [Recovering/Resolving]

NARRATIVE: CASE EVENT DATE: 20230627
